FAERS Safety Report 21268828 (Version 3)
Quarter: 2022Q3

REPORT INFORMATION
  Report Type: Spontaneous
  Country: US (occurrence: US)
  Receive Date: 20220830
  Receipt Date: 20220923
  Transmission Date: 20221027
  Serious: Yes (Hospitalization, Other)
  Sender: FDA-Public Use
  Company Number: US-SA-SAC20220826001033

PATIENT
  Sex: Male
  Weight: 70.3 kg

DRUGS (27)
  1. DUPIXENT [Suspect]
     Active Substance: DUPILUMAB
     Indication: Dermatitis atopic
     Dosage: 300 MG, QOW
     Route: 058
     Dates: start: 202207
  2. LIDOCAINE [Concomitant]
     Active Substance: LIDOCAINE
     Dosage: UNK
  3. SENOKOT [Concomitant]
     Active Substance: SENNOSIDES
  4. MIRALAX [Concomitant]
     Active Substance: POLYETHYLENE GLYCOL 3350
     Dosage: UNK; 17 G/DOSE
  5. MIDODRINE HYDROCHLORIDE [Concomitant]
     Active Substance: MIDODRINE HYDROCHLORIDE
  6. ONDANSETRON [Concomitant]
     Active Substance: ONDANSETRON
  7. HEPARIN SODIUM [Concomitant]
     Active Substance: HEPARIN SODIUM
     Dosage: UNK; 5000/0.5ML SYRINGE
  8. FAMOTIDINE [Concomitant]
     Active Substance: FAMOTIDINE
  9. CYCLOBENZAPRINE HYDROCHLORIDE [Concomitant]
     Active Substance: CYCLOBENZAPRINE HYDROCHLORIDE
  10. COREG [Concomitant]
     Active Substance: CARVEDILOL
  11. PLAVIX [Concomitant]
     Active Substance: CLOPIDOGREL BISULFATE
  12. LIPITOR [Concomitant]
     Active Substance: ATORVASTATIN CALCIUM
  13. TIMOLOL MALEATE [Concomitant]
     Active Substance: TIMOLOL MALEATE
  14. TRAVOPROST [Concomitant]
     Active Substance: TRAVOPROST
  15. SIMBRINZA [Concomitant]
     Active Substance: BRIMONIDINE TARTRATE\BRINZOLAMIDE
     Dosage: UNK; 1 %-0.2 % DROPS SUSP
  16. TRIAMCINOLONE ACETONIDE [Concomitant]
     Active Substance: TRIAMCINOLONE ACETONIDE
  17. LASIX [Concomitant]
     Active Substance: FUROSEMIDE
  18. CLOBETASOL PROPIONATE [Concomitant]
     Active Substance: CLOBETASOL PROPIONATE
  19. KETOCONAZOLE [Concomitant]
     Active Substance: KETOCONAZOLE
  20. TYLENOL [Concomitant]
     Active Substance: ACETAMINOPHEN
  21. GABAPENTIN [Concomitant]
     Active Substance: GABAPENTIN
  22. MYRBETRIQ [Concomitant]
     Active Substance: MIRABEGRON
     Dosage: ER 24 HR
  23. VITAMIN D NOS [Concomitant]
     Active Substance: VITAMIN D NOS
  24. CLARITIN [Concomitant]
     Active Substance: LORATADINE
  25. CALCIUM [Concomitant]
     Active Substance: CALCIUM
  26. ZOFRAN [Concomitant]
     Active Substance: ONDANSETRON HYDROCHLORIDE
  27. LASIX [Concomitant]
     Active Substance: FUROSEMIDE

REACTIONS (3)
  - Silent myocardial infarction [Unknown]
  - Hospitalisation [Unknown]
  - Rehabilitation therapy [Unknown]
